FAERS Safety Report 6836306-6 (Version None)
Quarter: 2010Q3

REPORT INFORMATION
  Report Type: 
  Country: None (occurrence: None)
  Receive Date: 20100713
  Receipt Date: 20100707
  Transmission Date: 20110219
  Serious: Yes (Other)
  Sender: FDA-Public Use
  Company Number: FR-ASTRAZENECA-2010SE31730

PATIENT
  Age: 61 Year
  Sex: Male

DRUGS (6)
  1. CRESTOR [Suspect]
     Route: 048
  2. COVERSYL [Suspect]
  3. AMLODIPINE [Suspect]
  4. SECTRAL [Suspect]
  5. PLAVIX [Suspect]
  6. ASPEGIC 1000 [Suspect]

REACTIONS (1)
  - THROMBOCYTOPENIA [None]
